FAERS Safety Report 19936685 (Version 6)
Quarter: 2023Q1

REPORT INFORMATION
  Report Type: Report from Study
  Country: CA (occurrence: CA)
  Receive Date: 20211008
  Receipt Date: 20230120
  Transmission Date: 20230417
  Serious: Yes (Hospitalization, Other)
  Sender: FDA-Public Use
  Company Number: CA-HLS-202000799

PATIENT
  Age: 57 Year
  Sex: Male

DRUGS (1)
  1. CLOZARIL [Suspect]
     Active Substance: CLOZAPINE
     Indication: Product used for unknown indication
     Route: 048
     Dates: start: 20100910

REACTIONS (32)
  - Monocyte count increased [Unknown]
  - Agitation [Recovered/Resolved]
  - Blood pressure increased [Unknown]
  - Vision blurred [Recovered/Resolved]
  - Nasopharyngitis [Unknown]
  - Seizure [Recovered/Resolved]
  - Cough [Unknown]
  - Hyperhidrosis [Not Recovered/Not Resolved]
  - Diarrhoea [Unknown]
  - Dizziness [Not Recovered/Not Resolved]
  - Fatigue [Unknown]
  - Headache [Not Recovered/Not Resolved]
  - Haemoglobin decreased [Unknown]
  - Infectious disease carrier [Recovered/Resolved]
  - Mean cell haemoglobin concentration decreased [Unknown]
  - Monocyte count increased [Unknown]
  - Muscle spasms [Unknown]
  - Nausea [Not Recovered/Not Resolved]
  - Neutrophil count increased [Unknown]
  - Platelet count increased [Unknown]
  - Exophthalmos [Recovered/Resolved]
  - Anaemia [Unknown]
  - Sedation [Recovered/Resolved]
  - Sedation [Recovered/Resolved]
  - Salivary hypersecretion [Recovered/Resolved]
  - Salivary hypersecretion [Not Recovered/Not Resolved]
  - Somnolence [Recovered/Resolved]
  - Oropharyngeal pain [Unknown]
  - Tremor [Recovered/Resolved]
  - Tremor [Recovered/Resolved]
  - Visual impairment [Recovered/Resolved]
  - White blood cell count increased [Unknown]

NARRATIVE: CASE EVENT DATE: 20210219
